FAERS Safety Report 15429377 (Version 1)
Quarter: 2018Q3

REPORT INFORMATION
  Report Type: Spontaneous
  Country: GB (occurrence: GB)
  Receive Date: 20180926
  Receipt Date: 20180926
  Transmission Date: 20181010
  Serious: Yes (Other)
  Sender: FDA-Public Use
  Company Number: GB-BAYER-2018-175153

PATIENT
  Age: 32 Year
  Sex: Female

DRUGS (1)
  1. MIRENA [Suspect]
     Active Substance: LEVONORGESTREL
     Dosage: 20 MCG/24HR, CONT
     Route: 015

REACTIONS (10)
  - Metastases to lymph nodes [None]
  - Uterine polyp [None]
  - Invasive ductal breast carcinoma [None]
  - Vaginal haemorrhage [None]
  - Metastases to uterus [None]
  - Ovarian cyst [None]
  - Adenocarcinoma of the cervix [None]
  - Breast cancer recurrent [None]
  - Metastases to chest wall [None]
  - Metastases to skin [None]

NARRATIVE: CASE EVENT DATE: 2017
